FAERS Safety Report 4585267-1 (Version None)
Quarter: 2005Q1

REPORT INFORMATION
  Report Type: 
  Country: None (occurrence: None)
  Receive Date: 20050217
  Receipt Date: 20050208
  Transmission Date: 20050727
  Serious: Yes (Other)
  Sender: FDA-Public Use
  Company Number: GB-JNJFOC-20050202884

PATIENT
  Age: 51 Year
  Weight: 68 kg

DRUGS (3)
  1. TOPAMAX [Suspect]
     Indication: MIGRAINE
     Route: 049
     Dates: start: 20041207, end: 20050204
  2. ZOMIG [Concomitant]
     Dosage: PRN
     Route: 049
  3. COD LIVER OIL [Concomitant]
     Route: 065

REACTIONS (3)
  - BLOOD CREATININE INCREASED [None]
  - BLOOD UREA INCREASED [None]
  - THIRST [None]
